FAERS Safety Report 5405025-5 (Version None)
Quarter: 2007Q3

REPORT INFORMATION
  Report Type: 
  Country: None (occurrence: None)
  Receive Date: 20070803
  Receipt Date: 20070726
  Transmission Date: 20080115
  Serious: Yes (Life-Threatening, Hospitalization)
  Sender: FDA-Public Use
  Company Number: US-JNJFOC-20070701600

PATIENT
  Sex: Female
  Weight: 79.38 kg

DRUGS (30)
  1. ETRAVIRINE [Suspect]
     Indication: HIV INFECTION
     Route: 048
  2. TMC114 [Suspect]
     Route: 048
  3. TMC114 [Suspect]
     Indication: HIV INFECTION
     Route: 048
  4. RITONAVIR [Suspect]
     Indication: HIV INFECTION
     Route: 048
  5. DIFLUCAN [Concomitant]
     Indication: ANTIFUNGAL PROPHYLAXIS
     Route: 048
  6. ESTRADIOL [Concomitant]
     Indication: HYSTERECTOMY
     Route: 048
  7. CYCLOBENZAPRINE HCL [Concomitant]
     Indication: PAIN
     Route: 048
  8. ZITHROMAX [Concomitant]
     Indication: MYCOBACTERIUM AVIUM COMPLEX INFECTION
     Route: 048
  9. ZYRTEC [Concomitant]
     Indication: EXCORIATION
     Route: 048
  10. ELAVIL [Concomitant]
     Indication: NEUROPATHY PERIPHERAL
     Route: 048
  11. ELAVIL [Concomitant]
     Indication: DEPRESSION
     Route: 048
  12. ACYCLOVIR [Concomitant]
     Indication: SKIN PAPILLOMA
     Route: 048
  13. ENTEX CAP [Concomitant]
     Indication: EXCORIATION
     Route: 048
  14. PRILOSEC [Concomitant]
     Indication: ANOREXIA
     Route: 048
  15. ALUPENT [Concomitant]
     Indication: PNEUMONIA BACTERIAL
     Route: 048
  16. EFFEXOR [Concomitant]
     Indication: DEPRESSION
     Route: 048
  17. AMBIEN [Concomitant]
     Indication: DEPRESSION
     Route: 048
  18. ATIVAN [Concomitant]
     Indication: CONVULSION
     Route: 048
  19. XANAX [Concomitant]
     Indication: DEPRESSION
     Route: 048
  20. VICODIN ES [Concomitant]
     Indication: PAIN
     Route: 048
  21. MEPRON [Concomitant]
     Indication: PNEUMOCYSTIS JIROVECI PNEUMONIA
     Route: 048
  22. CYMBALTA [Concomitant]
     Indication: NEUROPATHY PERIPHERAL
     Route: 048
  23. POTASSIUM CHLORIDE [Concomitant]
     Indication: HYPOKALAEMIA
     Route: 048
  24. DOXYCYCLINE [Concomitant]
     Indication: DERMATITIS
     Route: 048
  25. LIDEX [Concomitant]
     Indication: DERMATITIS
     Route: 048
  26. GLUCOPHAGE [Concomitant]
     Route: 048
  27. GLUCOPHAGE [Concomitant]
     Indication: DIABETES MELLITUS
     Route: 048
  28. FUZEON [Concomitant]
     Indication: HIV INFECTION
     Route: 058
  29. TRUVADA [Concomitant]
     Route: 048
  30. TRUVADA [Concomitant]
     Indication: HIV INFECTION
     Route: 048

REACTIONS (1)
  - RENAL FAILURE [None]
